FAERS Safety Report 13703916 (Version 6)
Quarter: 2018Q1

REPORT INFORMATION
  Report Type: Spontaneous
  Country: JP (occurrence: JP)
  Receive Date: 20170629
  Receipt Date: 20180219
  Transmission Date: 20180508
  Serious: Yes (Hospitalization, Other)
  Sender: FDA-Public Use
  Company Number: JP-MALLINCKRODT-T201702683

PATIENT
  Age: 67 Year
  Sex: Male
  Weight: 60 kg

DRUGS (12)
  1. LOBU [Concomitant]
     Active Substance: LOBUCAVIR
     Indication: PRODUCT USED FOR UNKNOWN INDICATION
     Dosage: 60 MG
     Route: 048
     Dates: start: 20170606, end: 20170606
  2. SOLDEM 3A [Concomitant]
     Active Substance: CARBOHYDRATES\POTASSIUM CHLORIDE\SODIUM CHLORIDE\SODIUM LACTATE
     Dosage: UNK
  3. DEPAS [Concomitant]
     Active Substance: ETIZOLAM
     Indication: PRODUCT USED FOR UNKNOWN INDICATION
     Dosage: 1 MG (ONE TIME DOSE 0.5 MG)
     Route: 048
     Dates: start: 20170606, end: 20170609
  4. OFIRMEV [Suspect]
     Active Substance: ACETAMINOPHEN
     Indication: ANALGESIC THERAPY
     Dosage: 1000 MG, QD
     Route: 042
     Dates: start: 20170605, end: 20170606
  5. SOLDEM 3A [Concomitant]
     Active Substance: CARBOHYDRATES\POTASSIUM CHLORIDE\SODIUM CHLORIDE\SODIUM LACTATE
     Dosage: 500 ML
     Route: 042
     Dates: start: 20170606, end: 20170607
  6. SOLDEM 3A [Concomitant]
     Active Substance: CARBOHYDRATES\POTASSIUM CHLORIDE\SODIUM CHLORIDE\SODIUM LACTATE
     Dosage: 500 ML
     Route: 065
     Dates: start: 20170609, end: 20170609
  7. DEPAS [Concomitant]
     Active Substance: ETIZOLAM
     Dosage: 1 MG, 0.5 MG
     Dates: start: 20170606, end: 20170609
  8. SOLACET F [Concomitant]
     Indication: PRODUCT USED FOR UNKNOWN INDICATION
     Dosage: 500 ML (ONE TIME DOSE OF 500 ML)
     Route: 042
     Dates: start: 20170605, end: 20170605
  9. SOLACET F [Concomitant]
     Dosage: 500 ML
     Route: 042
     Dates: start: 20170605, end: 20170605
  10. SOLDEM 3A [Concomitant]
     Active Substance: CARBOHYDRATES\POTASSIUM CHLORIDE\SODIUM CHLORIDE\SODIUM LACTATE
     Indication: PRODUCT USED FOR UNKNOWN INDICATION
     Dosage: 1500 ML
     Route: 042
     Dates: start: 20170605, end: 20170605
  11. CYTOTEC [Concomitant]
     Active Substance: MISOPROSTOL
     Indication: PRODUCT USED FOR UNKNOWN INDICATION
     Dosage: 200 UG (ONE TIME DOSE OF 200 UG)
     Route: 048
     Dates: start: 20170606, end: 20170606
  12. CYTOTEC [Concomitant]
     Active Substance: MISOPROSTOL
     Dosage: 200 ?G
     Route: 048
     Dates: start: 20170606, end: 20170606

REACTIONS (2)
  - Agranulocytosis [Recovering/Resolving]
  - Granulocytopenia [Recovering/Resolving]

NARRATIVE: CASE EVENT DATE: 20170609
